FAERS Safety Report 9729752 (Version 2)
Quarter: 2015Q3

REPORT INFORMATION
  Report Type: Spontaneous
  Country: US (occurrence: US)
  Receive Date: 20131204
  Receipt Date: 20150804
  Transmission Date: 20151125
  Serious: No
  Sender: FDA-Public Use
  Company Number: US-GILEAD-2009-0021943

PATIENT
  Age: 59 Year
  Sex: Male
  Weight: 104.33 kg

DRUGS (12)
  1. OMEPRAZOLE. [Concomitant]
     Active Substance: OMEPRAZOLE
  2. BISACODYL. [Concomitant]
     Active Substance: BISACODYL
  3. HCTZ [Concomitant]
     Active Substance: HYDROCHLOROTHIAZIDE
  4. METFORMIN [Concomitant]
     Active Substance: METFORMIN HYDROCHLORIDE
  5. DIGOXIN. [Concomitant]
     Active Substance: DIGOXIN
  6. LETAIRIS [Suspect]
     Active Substance: AMBRISENTAN
     Indication: PULMONARY ARTERIAL HYPERTENSION
     Route: 048
     Dates: start: 20080718
  7. COLACE [Concomitant]
     Active Substance: DOCUSATE SODIUM
  8. LISINOPRIL. [Concomitant]
     Active Substance: LISINOPRIL
  9. ATENOLOL. [Concomitant]
     Active Substance: ATENOLOL
  10. NEURONTIN [Concomitant]
     Active Substance: GABAPENTIN
  11. COUMADIN [Concomitant]
     Active Substance: WARFARIN SODIUM
  12. IRON [Concomitant]
     Active Substance: IRON

REACTIONS (2)
  - Weight increased [Unknown]
  - Peripheral swelling [Not Recovered/Not Resolved]
